FAERS Safety Report 10079572 (Version 1)
Quarter: 2014Q2

REPORT INFORMATION
  Report Type: Spontaneous
  Country: FR (occurrence: FR)
  Receive Date: 20140415
  Receipt Date: 20140415
  Transmission Date: 20141212
  Serious: Yes (Hospitalization, Other)
  Sender: FDA-Public Use
  Company Number: FR-PFIZER INC-2014100211

PATIENT
  Age: 31 Year
  Sex: Female

DRUGS (1)
  1. CYTOTEC [Suspect]
     Route: 048

REACTIONS (8)
  - Off label use [Recovered/Resolved with Sequelae]
  - Abortion spontaneous [Recovered/Resolved with Sequelae]
  - Foetal death [Recovered/Resolved with Sequelae]
  - Metrorrhagia [Recovered/Resolved with Sequelae]
  - Haemolytic anaemia [Recovered/Resolved with Sequelae]
  - Disseminated intravascular coagulation [Recovered/Resolved with Sequelae]
  - Renal failure acute [Recovered/Resolved with Sequelae]
  - Sepsis [Recovered/Resolved with Sequelae]
